FAERS Safety Report 9097574 (Version 2)
Quarter: 2013Q1

REPORT INFORMATION
  Report Type: Report from Study
  Country: CA (occurrence: CA)
  Receive Date: 20130212
  Receipt Date: 20130222
  Transmission Date: 20140127
  Serious: Yes (Death)
  Sender: FDA-Public Use
  Company Number: CA-ABBOTT-13P-028-1046653-00

PATIENT
  Sex: Male

DRUGS (1)
  1. LUPRON DEPOT [Suspect]
     Indication: PRODUCT USED FOR UNKNOWN INDICATION
     Dosage: LAST DOSE: 16-OCT-2012
     Route: 030
     Dates: start: 20121016, end: 20121016

REACTIONS (1)
  - Disease progression [Fatal]
